FAERS Safety Report 7216038-5 (Version None)
Quarter: 2011Q1

REPORT INFORMATION
  Report Type: 
  Country: None (occurrence: None)
  Receive Date: 20110107
  Receipt Date: 20101227
  Transmission Date: 20110831
  Serious: Yes (Hospitalization)
  Sender: FDA-Public Use
  Company Number: JP-ELI_LILLY_AND_COMPANY-JP201101000267

PATIENT
  Age: 72 Year
  Sex: Female

DRUGS (8)
  1. SOKEIKAKKETSUTOU [Concomitant]
  2. FERO GRAD LP VITAMINE C [Concomitant]
  3. FLUTIDE [Concomitant]
  4. ENALAPRIL [Concomitant]
  5. EVISTA [Suspect]
     Dosage: UNK, UNK
     Route: 048
     Dates: end: 20101221
  6. CELECOX [Concomitant]
  7. MUCOSTA [Concomitant]
  8. CALFINA [Concomitant]

REACTIONS (3)
  - ARTHRALGIA [None]
  - OEDEMA PERIPHERAL [None]
  - PAIN IN EXTREMITY [None]
